FAERS Safety Report 23846746 (Version 1)
Quarter: 2024Q2

REPORT INFORMATION
  Report Type: Spontaneous
  Country: IN (occurrence: IN)
  Receive Date: 20240513
  Receipt Date: 20240513
  Transmission Date: 20240716
  Serious: Yes (Other)
  Sender: FDA-Public Use
  Company Number: IN-SANDOZ-SDZ2024IN047545

PATIENT
  Sex: Male

DRUGS (2)
  1. TACROLIMUS [Suspect]
     Active Substance: TACROLIMUS
     Dosage: 2 MG
     Route: 048
  2. TACROLIMUS [Suspect]
     Active Substance: TACROLIMUS
     Indication: Renal transplant
     Dosage: 3 MG, BID
     Route: 048

REACTIONS (2)
  - IgA nephropathy [Unknown]
  - Tremor [Unknown]
